FAERS Safety Report 25244546 (Version 1)
Quarter: 2025Q2

REPORT INFORMATION
  Report Type: Spontaneous
  Country: US (occurrence: US)
  Receive Date: 20250428
  Receipt Date: 20250428
  Transmission Date: 20250716
  Serious: No
  Sender: ALKEM
  Company Number: US-ALKEM LABORATORIES LIMITED-US-ALKEM-2025-01319

PATIENT
  Sex: Female

DRUGS (4)
  1. SIROLIMUS [Suspect]
     Active Substance: SIROLIMUS
     Indication: Rhabdomyoma
     Route: 065
  2. SIROLIMUS [Suspect]
     Active Substance: SIROLIMUS
     Route: 065
  3. DIGOXIN [Concomitant]
     Active Substance: DIGOXIN
     Indication: Tachycardia foetal
     Route: 065
  4. FLECAINIDE [Concomitant]
     Active Substance: FLECAINIDE
     Indication: Tachycardia foetal
     Route: 065

REACTIONS (3)
  - Premature delivery [Unknown]
  - Hypertriglyceridaemia [Unknown]
  - Exposure during pregnancy [Unknown]
